FAERS Safety Report 4799951-8 (Version None)
Quarter: 2005Q4

REPORT INFORMATION
  Report Type: 
  Country: None (occurrence: None)
  Receive Date: 20051013
  Receipt Date: 20051011
  Transmission Date: 20060501
  Serious: Yes (Life-Threatening, Hospitalization)
  Sender: FDA-Public Use
  Company Number: TPG2005A00360

PATIENT
  Age: 74 Year
  Sex: Male

DRUGS (6)
  1. LEUPROLIDE ACETATE [Suspect]
     Indication: PROSTATE CANCER
     Dosage: 11.25 MG (11.25 MG, 1 IN 3 M), SUBCUTANEOUS
     Route: 058
     Dates: start: 20050601
  2. ACETYLSALICYLIC ACID SRT [Concomitant]
  3. MADOPAR (MADOPAR) (CAPSULES) [Concomitant]
  4. CORVATON SLOW RELEASE (MOLSIDOMINE) (TABLETS) [Concomitant]
  5. CONCOR (BISOPROLOL FUMARATE) (TABLETS) [Concomitant]
  6. ALNA (TAMSULOSIN HYDROCHLORIDE) [Concomitant]

REACTIONS (26)
  - ADRENOCORTICAL INSUFFICIENCY CHRONIC [None]
  - AORTIC DISORDER [None]
  - ATRIOVENTRICULAR BLOCK FIRST DEGREE [None]
  - BLOOD LACTATE DEHYDROGENASE INCREASED [None]
  - BLOOD PH DECREASED [None]
  - BLOOD POTASSIUM INCREASED [None]
  - BLOOD UREA INCREASED [None]
  - BONE PAIN [None]
  - CANDIDIASIS [None]
  - CARDIOMEGALY [None]
  - CEREBRAL ATROPHY [None]
  - CONDITION AGGRAVATED [None]
  - CORONARY ARTERY DISEASE [None]
  - DEHYDRATION [None]
  - DRUG LEVEL DECREASED [None]
  - ENCEPHALITIS [None]
  - EPILEPSY [None]
  - GLIAL SCAR [None]
  - HYPOKINESIA [None]
  - HYPONATRAEMIA [None]
  - LEUKOCYTURIA [None]
  - LIPASE INCREASED [None]
  - PANCYTOPENIA [None]
  - PNEUMONIA [None]
  - SEPSIS [None]
  - STAPHYLOCOCCAL INFECTION [None]
